FAERS Safety Report 16002030 (Version 1)
Quarter: 2019Q1

REPORT INFORMATION
  Report Type: Report from Study
  Country: GB (occurrence: GB)
  Receive Date: 20190225
  Receipt Date: 20190225
  Transmission Date: 20190418
  Serious: Yes (Other)
  Sender: FDA-Public Use
  Company Number: GB-MYLANLABS-2019M1016662

PATIENT
  Age: 64 Year
  Sex: Male

DRUGS (1)
  1. AZATHIOPRINE. [Suspect]
     Active Substance: AZATHIOPRINE
     Indication: ACQUIRED HAEMOPHILIA
     Route: 065

REACTIONS (2)
  - Transaminases increased [Unknown]
  - Treatment failure [Unknown]
